FAERS Safety Report 14777891 (Version 2)
Quarter: 2019Q2

REPORT INFORMATION
  Report Type: Spontaneous
  Country: HU (occurrence: HU)
  Receive Date: 20180419
  Receipt Date: 20190621
  Transmission Date: 20190711
  Serious: Yes (Other)
  Sender: FDA-Public Use
  Company Number: HU-ACCORD-065614

PATIENT
  Age: 64 Year
  Sex: Female

DRUGS (4)
  1. PALBOCICLIB [Suspect]
     Active Substance: PALBOCICLIB
     Indication: BREAST CANCER METASTATIC
     Dosage: 3/1 DOSING SCHEMA,24-FEB-2014 TO 29-SEP-2015, 125 MG, CYCLIC, (3/1 DOSING SCHEMA) (7TH CYCLE)
     Dates: start: 20170713, end: 2017
  2. ANASTROZOLE. [Concomitant]
     Active Substance: ANASTROZOLE
     Indication: PRODUCT USED FOR UNKNOWN INDICATION
  3. ZOLEDRONIC ACID [Suspect]
     Active Substance: ZOLEDRONIC ACID
     Indication: BREAST CANCER METASTATIC
     Dosage: EVERY 4 WEEKS
     Dates: start: 20170713
  4. LETROZOLE. [Suspect]
     Active Substance: LETROZOLE
     Indication: BREAST CANCER METASTATIC
     Dosage: 2.5 MG, DAILY (CONTINOUS)24-FEB-2014 TO 29-SEP-2015,05-MAY-2017
     Dates: start: 20170713

REACTIONS (11)
  - Metastases to the mediastinum [Unknown]
  - Metastases to lymph nodes [Unknown]
  - Metastases to lung [Unknown]
  - Compression fracture [Unknown]
  - Breast cancer metastatic [Unknown]
  - Malignant neoplasm progression [Unknown]
  - Pleural effusion [Unknown]
  - Metastases to bone [Unknown]
  - Off label use [Unknown]
  - Neutropenia [Unknown]
  - Hot flush [Unknown]

NARRATIVE: CASE EVENT DATE: 201707
